FAERS Safety Report 7212514-X (Version None)
Quarter: 2011Q1

REPORT INFORMATION
  Report Type: 
  Country: None (occurrence: None)
  Receive Date: 20110106
  Receipt Date: 20110103
  Transmission Date: 20110831
  Serious: No
  Sender: FDA-Public Use
  Company Number: US-PFIZER INC-2011001344

PATIENT
  Sex: Male
  Weight: 88.889 kg

DRUGS (3)
  1. ACETYLSALICYLIC ACID [Concomitant]
     Indication: MYOCARDIAL INFARCTION
     Dosage: 325 MG, 1X/DAY
     Route: 048
  2. VIAGRA [Suspect]
     Indication: ERECTILE DYSFUNCTION
     Dosage: 100 MG, UNK
     Route: 048
  3. VYTORIN [Concomitant]
     Indication: BLOOD CHOLESTEROL ABNORMAL
     Dosage: 10/40
     Route: 048

REACTIONS (1)
  - DRUG INEFFECTIVE [None]
